FAERS Safety Report 6024177-X (Version None)
Quarter: 2008Q4

REPORT INFORMATION
  Report Type: 
  Country: None (occurrence: None)
  Receive Date: 20081224
  Receipt Date: 20081216
  Transmission Date: 20090506
  Serious: Yes (Hospitalization)
  Sender: FDA-Public Use
  Company Number: 233080K08USA

PATIENT
  Age: 44 Year
  Sex: Female

DRUGS (3)
  1. REBIF [Suspect]
     Indication: MULTIPLE SCLEROSIS
     Dates: start: 20080514, end: 20080101
  2. RADIATION MEDICATION (ALL OTHER THERAPEUTIC PRODUCTS) [Suspect]
     Indication: THYROID CANCER
     Dates: start: 20081101
  3. UNSPECIFIED ANTIDEPRESSANT MEDICATION (ANTIDEPRESSANTS) [Concomitant]

REACTIONS (1)
  - VERTIGO [None]
